FAERS Safety Report 8483484-1 (Version None)
Quarter: 2012Q3

REPORT INFORMATION
  Report Type: 
  Country: None (occurrence: None)
  Receive Date: 20120702
  Receipt Date: 20120618
  Transmission Date: 20120928
  Serious: Yes (Hospitalization, Other)
  Sender: FDA-Public Use
  Company Number: GB-ELI_LILLY_AND_COMPANY-GB201206007469

PATIENT
  Age: 15 Year
  Sex: Male

DRUGS (1)
  1. OLANZAPINE [Suspect]

REACTIONS (5)
  - OVERDOSE [None]
  - ELECTROCARDIOGRAM T WAVE PEAKED [None]
  - MIOSIS [None]
  - ELECTROCARDIOGRAM ST SEGMENT DEPRESSION [None]
  - DEPRESSED LEVEL OF CONSCIOUSNESS [None]
